FAERS Safety Report 9682436 (Version 1)
Quarter: 2013Q4

REPORT INFORMATION
  Report Type: Spontaneous
  Country: US (occurrence: US)
  Receive Date: 20131112
  Receipt Date: 20131112
  Transmission Date: 20140711
  Serious: Yes (Hospitalization, Other)
  Sender: FDA-Public Use
  Company Number: US-MERCK-1311USA002974

PATIENT
  Age: 40 Year
  Sex: Male

DRUGS (3)
  1. PEGINTRON [Suspect]
     Indication: HEPATITIS C
     Dosage: 80 MICROGRAM, QW
     Route: 058
     Dates: start: 20130901, end: 20131027
  2. INCIVEK [Suspect]
  3. REBETOL [Suspect]
     Route: 048

REACTIONS (1)
  - Pancreatitis acute [Recovering/Resolving]
